FAERS Safety Report 8849160 (Version 2)
Quarter: 2014Q2

REPORT INFORMATION
  Report Type: Report from Study
  Country: MX (occurrence: MX)
  Receive Date: 20121019
  Receipt Date: 20140501
  Transmission Date: 20141212
  Serious: Yes (Other)
  Sender: FDA-Public Use
  Company Number: PHHY2012MX092954

PATIENT
  Age: 67 Year
  Sex: Male

DRUGS (2)
  1. CO-DIOVAN [Suspect]
     Indication: HYPERTENSION
     Dosage: 1 DF, (VALSARTAN 160 MG AND 12.5 MG HYDROCHOLOROTHIAZIDE) PER DAY
     Route: 048
     Dates: start: 201201
  2. GLIBENCLAMIDE W/METFORMIN [Concomitant]
     Indication: DIABETES MELLITUS
     Dosage: 1 DF (500MG), DAILY

REACTIONS (5)
  - Paralysis [Not Recovered/Not Resolved]
  - Gait disturbance [Not Recovered/Not Resolved]
  - Pharyngitis [Recovered/Resolved]
  - Cough [Recovered/Resolved]
  - Drug ineffective [Not Recovered/Not Resolved]
